FAERS Safety Report 8578089-8 (Version None)
Quarter: 2012Q3

REPORT INFORMATION
  Report Type: 
  Country: None (occurrence: None)
  Receive Date: 20120726
  Receipt Date: 20120716
  Transmission Date: 20120928
  Serious: Yes (Death)
  Sender: FDA-Public Use
  Company Number: B0816457A

PATIENT
  Age: 24 Year
  Sex: Male

DRUGS (4)
  1. DOMPERIDONE (DOMPERIDONE) [Suspect]
     Indication: PRODUCT USED FOR UNKNOWN INDICATION
     Dosage: 50 MG, ORAL
     Route: 048
  2. ONDANSETRON HYDROCHLORIDE [Suspect]
     Indication: PRODUCT USED FOR UNKNOWN INDICATION
     Dosage: 40 MG, ORAL
     Route: 048
  3. CHLOROQUINE PHOSPHATE [Suspect]
     Indication: PRODUCT USED FOR UNKNOWN INDICATION
     Dosage: 14500 MG, ORAL
     Route: 048
  4. MIDAZOLAM HCL [Suspect]
     Indication: PRODUCT USED FOR UNKNOWN INDICATION
     Dosage: 150 MG, ORAL
     Route: 048

REACTIONS (11)
  - PO2 DECREASED [None]
  - LOSS OF CONSCIOUSNESS [None]
  - VENTRICULAR FIBRILLATION [None]
  - PULSELESS ELECTRICAL ACTIVITY [None]
  - VENTRICULAR TACHYCARDIA [None]
  - NO THERAPEUTIC RESPONSE [None]
  - NERVOUS SYSTEM DISORDER [None]
  - MULTIPLE DRUG OVERDOSE INTENTIONAL [None]
  - NODAL RHYTHM [None]
  - BLOOD PRESSURE DECREASED [None]
  - BRAIN DEATH [None]
